FAERS Safety Report 8815880 (Version 2)
Quarter: 2015Q3

REPORT INFORMATION
  Report Type: Report from Study
  Country: US (occurrence: US)
  Receive Date: 20120928
  Receipt Date: 20150713
  Transmission Date: 20151125
  Serious: Yes (Death)
  Sender: FDA-Public Use
  Company Number: US-ROCHE-1129972

PATIENT
  Sex: Female

DRUGS (1)
  1. HERCEPTIN [Suspect]
     Active Substance: TRASTUZUMAB
     Indication: BREAST CANCER FEMALE
     Dosage: CONSEQUENTLY, SHE RECEIVED TRASTUZUMAB INFUSION ON 21/MAY/2001, 31/MAY/2001, 05/JUN/2001, 12/JUN/200
     Route: 042
     Dates: start: 20010306

REACTIONS (2)
  - Death [Fatal]
  - Off label use [Unknown]
